FAERS Safety Report 24457804 (Version 1)
Quarter: 2024Q4

REPORT INFORMATION
  Report Type: Report from Study
  Country: US (occurrence: US)
  Receive Date: 20241018
  Receipt Date: 20241018
  Transmission Date: 20250114
  Serious: No
  Sender: ROCHE
  Company Number: US-ROCHE-3437863

PATIENT
  Age: 36 Year
  Sex: Male

DRUGS (3)
  1. CATHFLO ACTIVASE [Suspect]
     Active Substance: ALTEPLASE
     Indication: Pleural effusion
     Dosage: WITH SODIUM CHLORIDE 0.9% 50 ML?DATE OF SERVICE: 02/SEP/2023, 03/SEP/2023, 04/SEP/2023
     Route: 065
  2. CATHFLO ACTIVASE [Suspect]
     Active Substance: ALTEPLASE
     Indication: Splenomegaly
  3. SODIUM CHLORIDE [Concomitant]
     Active Substance: SODIUM CHLORIDE

REACTIONS (2)
  - Off label use [Unknown]
  - No adverse event [Unknown]
